FAERS Safety Report 4378511-7 (Version None)
Quarter: 2004Q2

REPORT INFORMATION
  Report Type: 
  Country: None (occurrence: None)
  Receive Date: 20040616
  Receipt Date: 20040607
  Transmission Date: 20050107
  Serious: Yes (Life-Threatening)
  Sender: FDA-Public Use
  Company Number: PHEH2004US06280

PATIENT
  Age: 45 Year
  Sex: Female

DRUGS (10)
  1. ZELNORM [Suspect]
     Indication: IRRITABLE BOWEL SYNDROME
     Dosage: 6 MG, BID
     Route: 048
     Dates: start: 20040201
  2. ZELNORM [Suspect]
     Dosage: 6 MG, BID
     Route: 048
     Dates: end: 20040602
  3. METFORMIN HYDROCHLORIDE [Concomitant]
     Indication: DIABETES MELLITUS
     Dosage: 500 MG, BID
     Dates: start: 20040101
  4. ZEBETA [Concomitant]
     Indication: ARRHYTHMIA
     Dosage: 5 MG, BID
  5. LIPITOR [Concomitant]
     Indication: BLOOD CHOLESTEROL INCREASED
     Dosage: 10 MG, QD
     Route: 048
     Dates: start: 20040101
  6. XANAX [Concomitant]
     Dosage: UNK, PRN
     Dates: start: 20031201
  7. EFFEXOR [Concomitant]
     Dosage: UNK, PRN
     Dates: start: 20031201
  8. VICODIN [Concomitant]
     Dosage: UNK, PRN
     Dates: start: 20031201
  9. NEXIUM [Concomitant]
     Indication: GASTROOESOPHAGEAL REFLUX DISEASE
     Dosage: UNK, QD
  10. MILK OF MAGNESIA TAB [Concomitant]
     Indication: CONSTIPATION

REACTIONS (9)
  - ABDOMINAL PAIN [None]
  - APPENDICECTOMY [None]
  - COLONOSCOPY ABNORMAL [None]
  - CONDITION AGGRAVATED [None]
  - CONSTIPATION [None]
  - DIARRHOEA [None]
  - LAPAROSCOPY ABNORMAL [None]
  - POLYP [None]
  - VOLVULUS OF BOWEL [None]
